FAERS Safety Report 11717364 (Version 2)
Quarter: 2015Q4

REPORT INFORMATION
  Report Type: Spontaneous
  Country: CA (occurrence: CA)
  Receive Date: 20151110
  Receipt Date: 20151110
  Transmission Date: 20160304
  Serious: Yes (Other)
  Sender: FDA-Public Use
  Company Number: CA-ROCHE-1656003

PATIENT
  Sex: Female

DRUGS (34)
  1. HUMIRA [Suspect]
     Active Substance: ADALIMUMAB
     Indication: PRODUCT USED FOR UNKNOWN INDICATION
     Route: 065
  2. ATIVAN [Concomitant]
     Active Substance: LORAZEPAM
  3. NORFLEX [Concomitant]
     Active Substance: ORPHENADRINE CITRATE
  4. OMNARIS [Concomitant]
     Active Substance: CICLESONIDE
     Route: 065
  5. TRIMETHOPRIM. [Concomitant]
     Active Substance: TRIMETHOPRIM
  6. URISPAS [Concomitant]
     Active Substance: FLAVOXATE HYDROCHLORIDE
     Route: 065
  7. KADIAN [Concomitant]
     Active Substance: MORPHINE SULFATE
     Route: 065
  8. KENALOG (CANADA) [Concomitant]
     Route: 065
  9. LASIX [Concomitant]
     Active Substance: FUROSEMIDE
  10. PANTOLOC [Concomitant]
     Active Substance: PANTOPRAZOLE SODIUM
     Route: 065
  11. ACTEMRA [Suspect]
     Active Substance: TOCILIZUMAB
     Indication: PRODUCT USED FOR UNKNOWN INDICATION
     Route: 065
  12. ENBREL [Suspect]
     Active Substance: ETANERCEPT
     Indication: RHEUMATOID ARTHRITIS
     Dosage: THERAPY DURATION: 3 YEARS
     Route: 065
  13. REMICADE [Suspect]
     Active Substance: INFLIXIMAB
     Indication: PRODUCT USED FOR UNKNOWN INDICATION
     Route: 065
  14. SODIUM AUROTHIOMALATE [Suspect]
     Active Substance: GOLD SODIUM THIOMALATE
     Indication: PRODUCT USED FOR UNKNOWN INDICATION
     Route: 030
  15. CODEINE [Concomitant]
     Active Substance: CODEINE
  16. DILAUDID [Concomitant]
     Active Substance: HYDROMORPHONE HYDROCHLORIDE
  17. HYDROMORPHONE [Concomitant]
     Active Substance: HYDROMORPHONE
  18. LOPERAMIDE [Concomitant]
     Active Substance: LOPERAMIDE
  19. RITUXAN [Concomitant]
     Active Substance: RITUXIMAB
     Route: 042
  20. PLAQUENIL [Suspect]
     Active Substance: HYDROXYCHLOROQUINE SULFATE
     Indication: PRODUCT USED FOR UNKNOWN INDICATION
     Route: 065
  21. XELJANZ [Suspect]
     Active Substance: TOFACITINIB CITRATE
     Indication: PRODUCT USED FOR UNKNOWN INDICATION
     Route: 065
  22. SYNTHROID [Concomitant]
     Active Substance: LEVOTHYROXINE SODIUM
  23. VAGIFEM [Concomitant]
     Active Substance: ESTRADIOL
  24. ARAVA [Suspect]
     Active Substance: LEFLUNOMIDE
     Indication: RHEUMATOID ARTHRITIS
     Route: 065
  25. ORENCIA [Suspect]
     Active Substance: ABATACEPT
     Indication: PRODUCT USED FOR UNKNOWN INDICATION
     Route: 065
  26. ACETAMINOPHEN. [Concomitant]
     Active Substance: ACETAMINOPHEN
  27. CORTISONE [Concomitant]
     Active Substance: CORTISONE\HYDROCORTISONE
  28. ENABLEX [Concomitant]
     Active Substance: DARIFENACIN\DARIFENACIN HYDROBROMIDE
     Route: 065
  29. OXYNEO [Concomitant]
     Active Substance: OXYCODONE
     Route: 065
  30. RESTASIS [Concomitant]
     Active Substance: CYCLOSPORINE
     Route: 065
  31. METHOTREXATE [Suspect]
     Active Substance: METHOTREXATE
     Indication: PRODUCT USED FOR UNKNOWN INDICATION
     Route: 065
  32. KINERET [Concomitant]
     Active Substance: ANAKINRA
     Route: 065
  33. BENADRYL [Concomitant]
     Active Substance: DIPHENHYDRAMINE HYDROCHLORIDE
  34. DEXAMETHASONE. [Concomitant]
     Active Substance: DEXAMETHASONE

REACTIONS (12)
  - Joint swelling [Unknown]
  - Liver function test abnormal [Unknown]
  - Anaemia [Unknown]
  - Blood cholesterol increased [Unknown]
  - Infection [Unknown]
  - Peripheral swelling [Unknown]
  - Synovitis [Unknown]
  - Herpes zoster [Unknown]
  - Leukopenia [Unknown]
  - Arthritis [Unknown]
  - Fibromyalgia [Unknown]
  - Soft tissue disorder [Unknown]
